FAERS Safety Report 24005582 (Version 1)
Quarter: 2024Q2

REPORT INFORMATION
  Report Type: Spontaneous
  Country: GB (occurrence: GB)
  Receive Date: 20240624
  Receipt Date: 20240624
  Transmission Date: 20240716
  Serious: Yes (Other)
  Sender: FDA-Public Use
  Company Number: None

PATIENT
  Sex: Male
  Weight: 91 kg

DRUGS (2)
  1. CITALOPRAM [Suspect]
     Active Substance: CITALOPRAM\CITALOPRAM HYDROBROMIDE
     Indication: Mood disorder due to a general medical condition
     Dosage: 40 MILLIGRAM, AM (40 MG ONCE A DAY IN MORNING)
     Route: 065
     Dates: start: 20200601
  2. MIRTAZAPINE [Concomitant]
     Active Substance: MIRTAZAPINE
     Indication: Mood disorder due to a general medical condition
     Dosage: UNK
     Route: 065
     Dates: start: 20200501

REACTIONS (3)
  - Erectile dysfunction [Not Recovered/Not Resolved]
  - Libido decreased [Not Recovered/Not Resolved]
  - Anorgasmia [Not Recovered/Not Resolved]
